FAERS Safety Report 6210981-1 (Version None)
Quarter: 2009Q2

REPORT INFORMATION
  Report Type: 
  Country: None (occurrence: None)
  Receive Date: 20090528
  Receipt Date: 20090528
  Transmission Date: 20091009
  Serious: No
  Sender: FDA-Public Use
  Company Number: None

PATIENT
  Age: 72 Year
  Sex: Female
  Weight: 81.6475 kg

DRUGS (1)
  1. AUGMENTIN [Suspect]
     Indication: ANIMAL BITE
     Dosage: 2 TAB 2 TIMES A DAY PO 10 DAYA
     Route: 048
     Dates: start: 20090429, end: 20090509

REACTIONS (1)
  - CLOSTRIDIAL INFECTION [None]
